FAERS Safety Report 6834398-1 (Version None)
Quarter: 2010Q3

REPORT INFORMATION
  Report Type: 
  Country: None (occurrence: None)
  Receive Date: 20100712
  Receipt Date: 20070423
  Transmission Date: 20110219
  Serious: Yes (Other)
  Sender: FDA-Public Use
  Company Number: US-PFIZER INC-2007033854

PATIENT
  Sex: Female
  Weight: 55.454 kg

DRUGS (4)
  1. CHANTIX [Suspect]
     Indication: SMOKING CESSATION THERAPY
     Dosage: 1 EVERY NA DAYS
     Route: 048
     Dates: start: 20070401, end: 20070419
  2. KLONOPIN [Concomitant]
  3. INDERAL [Concomitant]
  4. PRIMIDONE [Concomitant]

REACTIONS (14)
  - ABDOMINAL PAIN UPPER [None]
  - ANAEMIA [None]
  - ASTHENIA [None]
  - DYSGEUSIA [None]
  - DYSPNOEA [None]
  - GINGIVAL BLEEDING [None]
  - MALAISE [None]
  - MYALGIA [None]
  - NAUSEA [None]
  - OCULAR HYPERAEMIA [None]
  - RESPIRATORY RATE DECREASED [None]
  - SOMNOLENCE [None]
  - VISUAL IMPAIRMENT [None]
  - WEIGHT INCREASED [None]
